FAERS Safety Report 19887760 (Version 1)
Quarter: 2021Q3

REPORT INFORMATION
  Report Type: Spontaneous
  Country: US (occurrence: US)
  Receive Date: 20210924
  Receipt Date: 20210924
  Transmission Date: 20211014
  Serious: No
  Sender: FDA-Public Use
  Company Number: None

PATIENT

DRUGS (3)
  1. TRAZODONE HYDROCHLORIDE. [Suspect]
     Active Substance: TRAZODONE HYDROCHLORIDE
  2. PYRIDIUM [Suspect]
     Active Substance: PHENAZOPYRIDINE
  3. RESTORIL [Suspect]
     Active Substance: TEMAZEPAM

REACTIONS (2)
  - Product communication issue [None]
  - Product administration error [None]
